FAERS Safety Report 21658935 (Version 1)
Quarter: 2022Q4

REPORT INFORMATION
  Report Type: Spontaneous
  Country: US (occurrence: None)
  Receive Date: 20221128
  Receipt Date: 20221128
  Transmission Date: 20230112
  Serious: Yes (Hospitalization)
  Sender: FDA-Public Use
  Company Number: None

PATIENT
  Age: 49 Year
  Sex: Male
  Weight: 142.79 kg

DRUGS (15)
  1. INLYTA [Suspect]
     Active Substance: AXITINIB
     Indication: Renal cancer
     Dosage: FREQUENCY : TWICE A DAY;?
     Route: 048
     Dates: start: 20221017
  2. SENNA [Concomitant]
     Active Substance: SENNA LEAF\SENNOSIDES\SENNOSIDES A AND B
  3. DEXAMETHASONE [Concomitant]
     Active Substance: DEXAMETHASONE
  4. DIPHENHYDRAMINE [Concomitant]
     Active Substance: DIPHENHYDRAMINE
  5. ELIQUIS [Concomitant]
     Active Substance: APIXABAN
  6. FAMOTIDINE [Concomitant]
     Active Substance: FAMOTIDINE
  7. FUROSEMIDE [Concomitant]
     Active Substance: FUROSEMIDE
  8. METHYLPREDNISOLONE [Concomitant]
     Active Substance: METHYLPREDNISOLONE
  9. METOPROLOL [Concomitant]
     Active Substance: METOPROLOL
  10. MORPHINE SULFATE [Concomitant]
     Active Substance: MORPHINE SULFATE
  11. NARCAN [Concomitant]
     Active Substance: NALOXONE HYDROCHLORIDE
  12. NORCO [Concomitant]
     Active Substance: ACETAMINOPHEN\HYDROCODONE BITARTRATE
  13. SODIUM CHLORIDE [Concomitant]
     Active Substance: SODIUM CHLORIDE
  14. NOVOLIN NOS [Concomitant]
     Active Substance: INSULIN HUMAN
  15. SYNTHROID [Concomitant]
     Active Substance: LEVOTHYROXINE SODIUM

REACTIONS (3)
  - Abdominal infection [None]
  - Blister [None]
  - Ulcer [None]

NARRATIVE: CASE EVENT DATE: 20221119
